FAERS Safety Report 9456540 (Version 1)
Quarter: 2013Q3

REPORT INFORMATION
  Report Type: Spontaneous
  Country: FR (occurrence: None)
  Receive Date: 20130809
  Receipt Date: 20130809
  Transmission Date: 20140515
  Serious: Yes (Other)
  Sender: FDA-Public Use
  Company Number: FK201303116

PATIENT
  Age: 68 Year
  Sex: Female

DRUGS (1)
  1. IRINOTECAN [Suspect]
     Indication: PRODUCT USED FOR UNKNOWN INDICATION
     Dosage: 176 MG, CYCLICAL
     Dates: start: 20130423

REACTIONS (1)
  - Angioedema [None]
